FAERS Safety Report 4533291-7 (Version None)
Quarter: 2004Q4

REPORT INFORMATION
  Report Type: 
  Country: None (occurrence: None)
  Receive Date: 20041221
  Receipt Date: 20040106
  Transmission Date: 20050328
  Serious: Yes (Hospitalization)
  Sender: FDA-Public Use
  Company Number: PHNR2004AU00450

PATIENT
  Age: 34 Year
  Sex: Male

DRUGS (4)
  1. CLOZARIL [Suspect]
     Indication: SCHIZOPHRENIA
     Dosage: 12 - 500 MG/DAY
     Dates: start: 19950920, end: 19960501
  2. CLOZARIL [Suspect]
     Dosage: 12 - 600 MG/DAY
     Dates: start: 19980511, end: 20041214
  3. SERTRALINE [Concomitant]
     Dosage: 200 MG, QD
     Route: 048
  4. ESOMEPRAZOLE [Concomitant]
     Dosage: 20 MG, QD
     Route: 048

REACTIONS (10)
  - BLOOD CHOLESTEROL INCREASED [None]
  - BLOOD GLUCOSE INCREASED [None]
  - BLOOD TRIGLYCERIDES INCREASED [None]
  - MALAISE [None]
  - NAUSEA [None]
  - POLYDIPSIA [None]
  - POLYURIA [None]
  - TREMOR [None]
  - VOMITING [None]
  - WEIGHT INCREASED [None]
